FAERS Safety Report 23575098 (Version 3)
Quarter: 2024Q1

REPORT INFORMATION
  Report Type: Spontaneous
  Country: DE (occurrence: DE)
  Receive Date: 20240228
  Receipt Date: 20240312
  Transmission Date: 20240410
  Serious: Yes (Other)
  Sender: FDA-Public Use
  Company Number: DE-BRISTOL-MYERS SQUIBB COMPANY-2023-179223

PATIENT
  Age: 73 Year
  Sex: Male
  Weight: 70 kg

DRUGS (34)
  1. CARBOPLATIN [Suspect]
     Active Substance: CARBOPLATIN
     Dosage: UNIT: 4 AUC - MG/MIN ML
     Route: 042
     Dates: start: 20240130
  2. CARBOPLATIN [Suspect]
     Active Substance: CARBOPLATIN
     Indication: Non-small cell lung cancer
     Dosage: UNIT: 5 AUC - MG/MIN ML
     Route: 042
     Dates: start: 20231205
  3. CARBOPLATIN [Suspect]
     Active Substance: CARBOPLATIN
     Dosage: UNIT: AUC - MG/MIN ML-DOSE 5
     Route: 042
     Dates: start: 20240104
  4. PACLITAXEL [Suspect]
     Active Substance: PACLITAXEL
     Indication: Non-small cell lung cancer
     Dosage: 100 MG/M2
     Route: 042
     Dates: start: 20231205
  5. PACLITAXEL [Suspect]
     Active Substance: PACLITAXEL
     Dosage: 100 MG/M2
     Route: 042
     Dates: start: 20231212
  6. PACLITAXEL [Suspect]
     Active Substance: PACLITAXEL
     Dosage: 100 MG/M2
     Route: 042
  7. PACLITAXEL [Suspect]
     Active Substance: PACLITAXEL
     Dosage: 70 MG/M2
     Route: 042
     Dates: start: 20240104
  8. PACLITAXEL [Suspect]
     Active Substance: PACLITAXEL
     Dosage: 70 MG/M2
     Route: 042
     Dates: start: 20240111
  9. PACLITAXEL [Suspect]
     Active Substance: PACLITAXEL
     Dosage: 70 MG/M2
     Route: 042
     Dates: start: 20240130
  10. NIVOLUMAB [Suspect]
     Active Substance: NIVOLUMAB
     Indication: Non-small cell lung cancer
     Dosage: 21 DAYS PER CYCLE FOR 3 CYCLES
     Route: 042
     Dates: start: 20231205
  11. ASPIRIN [Concomitant]
     Active Substance: ASPIRIN
     Indication: Product used for unknown indication
     Dosage: 100 MG, QD
     Route: 048
  12. ASPIRIN [Concomitant]
     Active Substance: ASPIRIN
     Indication: Prophylaxis
  13. ASPIRIN [Concomitant]
     Active Substance: ASPIRIN
     Indication: Prophylaxis
  14. ASPIRIN [Concomitant]
     Active Substance: ASPIRIN
     Indication: Supportive care
  15. ASPIRIN [Concomitant]
     Active Substance: ASPIRIN
     Indication: Supportive care
  16. ALLOPURINOL [Concomitant]
     Active Substance: ALLOPURINOL
     Indication: Hyperuricaemia
     Dosage: 100 MG, QD
     Route: 048
  17. ATORVASTATIN [Concomitant]
     Active Substance: ATORVASTATIN
     Indication: Hypercholesterolaemia
     Dosage: 10 MG, QD
     Route: 048
  18. CODEINE [Concomitant]
     Active Substance: CODEINE
     Indication: Product used for unknown indication
     Dosage: DOSE P.R.N. (AS NEEDED)
     Route: 048
     Dates: start: 20231201
  19. CODEINE [Concomitant]
     Active Substance: CODEINE
     Indication: Prophylaxis
  20. CODEINE [Concomitant]
     Active Substance: CODEINE
     Indication: Prophylaxis
  21. CODEINE [Concomitant]
     Active Substance: CODEINE
     Indication: Supportive care
  22. CODEINE [Concomitant]
     Active Substance: CODEINE
     Indication: Supportive care
  23. CHOLECALCIFEROL [Concomitant]
     Active Substance: CHOLECALCIFEROL
     Indication: Vitamin D deficiency
     Dosage: EVERY 2 WEEKS
     Route: 048
  24. DEXAMETHASONE [Concomitant]
     Active Substance: DEXAMETHASONE
     Dosage: PER CYCLE
     Route: 048
     Dates: start: 20231205
  25. DEXAMETHASONE [Concomitant]
     Active Substance: DEXAMETHASONE
     Indication: Product used for unknown indication
     Dosage: PER CYCLE
     Route: 048
     Dates: start: 20231206
  26. GLYCOPYRRONIUM\INDACATEROL [Concomitant]
     Active Substance: GLYCOPYRRONIUM\INDACATEROL
     Indication: Chronic obstructive pulmonary disease
     Dosage: 85 MG, QD
     Route: 048
  27. METOCLOPRAMIDE [Concomitant]
     Active Substance: METOCLOPRAMIDE
     Indication: Product used for unknown indication
     Dosage: DOSE P.R.N. (AS NEEDED)
     Route: 048
     Dates: start: 20231201, end: 20240103
  28. NETUPITANT\PALONOSETRON [Concomitant]
     Active Substance: NETUPITANT\PALONOSETRON
     Indication: Product used for unknown indication
     Dosage: P.R.N. (AS NEEDED)
     Route: 048
     Dates: start: 20231205
  29. NETUPITANT\PALONOSETRON [Concomitant]
     Active Substance: NETUPITANT\PALONOSETRON
     Indication: Prophylaxis
  30. NETUPITANT\PALONOSETRON [Concomitant]
     Active Substance: NETUPITANT\PALONOSETRON
     Indication: Prophylaxis
  31. NETUPITANT\PALONOSETRON [Concomitant]
     Active Substance: NETUPITANT\PALONOSETRON
     Indication: Supportive care
  32. NETUPITANT\PALONOSETRON [Concomitant]
     Active Substance: NETUPITANT\PALONOSETRON
     Indication: Supportive care
  33. PANTOPRAZOLE [Concomitant]
     Active Substance: PANTOPRAZOLE
     Indication: Prophylaxis
     Dosage: 40 MG, QD
     Route: 048
     Dates: start: 20231222
  34. RAMIPRIL [Concomitant]
     Active Substance: RAMIPRIL
     Indication: Hypertension
     Dosage: TWICE DAILY
     Route: 048

REACTIONS (9)
  - Polyneuropathy [Not Recovered/Not Resolved]
  - Obstruction gastric [Unknown]
  - Epistaxis [Recovering/Resolving]
  - Bronchitis [Recovered/Resolved]
  - Anaemia [Not Recovered/Not Resolved]
  - Diarrhoea [Recovered/Resolved]
  - Nausea [Recovered/Resolved]
  - Abdominal pain upper [Recovered/Resolved]
  - Constipation [Recovered/Resolved]

NARRATIVE: CASE EVENT DATE: 20231206
